FAERS Safety Report 13795767 (Version 2)
Quarter: 2017Q3

REPORT INFORMATION
  Report Type: Spontaneous
  Country: ES (occurrence: ES)
  Receive Date: 20170726
  Receipt Date: 20170802
  Transmission Date: 20171127
  Serious: No
  Sender: FDA-Public Use
  Company Number: ES-SA-2017SA135270

PATIENT
  Sex: Female

DRUGS (8)
  1. PRANDIN [Concomitant]
     Active Substance: REPAGLINIDE
     Route: 048
  2. SOLOSTAR [Suspect]
     Active Substance: DEVICE
  3. ESOMEPRAZOLE [Concomitant]
     Active Substance: ESOMEPRAZOLE
     Indication: PROPHYLAXIS
     Route: 048
  4. PARACETAMOL [Concomitant]
     Active Substance: ACETAMINOPHEN
     Route: 065
  5. TOUJEO [Suspect]
     Active Substance: INSULIN GLARGINE
     Route: 058
  6. DABIGATRAN [Concomitant]
     Active Substance: DABIGATRAN
     Indication: ANTICOAGULANT THERAPY
     Route: 048
  7. FLATORIL [Concomitant]
     Active Substance: CLEBOPRIDE MALATE\DIMETHICONE
     Route: 048
  8. LEXATIN [Concomitant]
     Active Substance: BROMAZEPAM
     Route: 048

REACTIONS (2)
  - Injection site bruising [Recovering/Resolving]
  - Device issue [Unknown]

NARRATIVE: CASE EVENT DATE: 201707
